FAERS Safety Report 24525059 (Version 1)
Quarter: 2024Q4

REPORT INFORMATION
  Report Type: Spontaneous
  Country: IT (occurrence: IT)
  Receive Date: 20241019
  Receipt Date: 20241019
  Transmission Date: 20250115
  Serious: Yes (Other)
  Sender: CELLTRION
  Company Number: IT-ROCHE-3545103

PATIENT

DRUGS (6)
  1. BEVACIZUMAB [Suspect]
     Active Substance: BEVACIZUMAB
     Indication: Colorectal cancer
     Dosage: 12 CYCLES WITH FOLFOX, 5 CYCLES WITH FLUOROURACIL
     Route: 065
  2. FLUOROURACIL [Suspect]
     Active Substance: FLUOROURACIL
     Indication: Colorectal cancer
     Route: 065
  3. IRINOTECAN [Concomitant]
     Active Substance: IRINOTECAN
  4. OXALIPLATIN [Concomitant]
     Active Substance: OXALIPLATIN
  5. AFLIBERCEPT [Concomitant]
     Active Substance: AFLIBERCEPT
  6. LEUCOVORIN [Concomitant]
     Active Substance: LEUCOVORIN\LEUCOVORIN CALCIUM

REACTIONS (3)
  - Metastases to lung [Unknown]
  - Disease progression [Unknown]
  - Metastases to liver [Unknown]
